FAERS Safety Report 14118987 (Version 2)
Quarter: 2017Q4

REPORT INFORMATION
  Report Type: Spontaneous
  Country: CH (occurrence: CH)
  Receive Date: 20171024
  Receipt Date: 20171107
  Transmission Date: 20180321
  Serious: Yes (Death, Other)
  Sender: FDA-Public Use
  Company Number: CH-JNJFOC-20171019413

PATIENT
  Age: 65 Year
  Sex: Female

DRUGS (16)
  1. CITALOPRAM [Suspect]
     Active Substance: CITALOPRAM HYDROBROMIDE
     Indication: PRODUCT USED FOR UNKNOWN INDICATION
     Route: 065
  2. ZOLPIDEM [Suspect]
     Active Substance: ZOLPIDEM\ZOLPIDEM TARTRATE
     Indication: PRODUCT USED FOR UNKNOWN INDICATION
     Route: 048
  3. DIPYRONE [Suspect]
     Active Substance: DIPYRONE
     Indication: PRODUCT USED FOR UNKNOWN INDICATION
     Route: 065
  4. METOCLOPRAMIDE. [Suspect]
     Active Substance: METOCLOPRAMIDE
     Indication: PRODUCT USED FOR UNKNOWN INDICATION
     Route: 065
  5. DEXTROMETHORPHAN [Suspect]
     Active Substance: DEXTROMETHORPHAN
     Indication: PRODUCT USED FOR UNKNOWN INDICATION
     Route: 065
  6. TRAZODONE [Suspect]
     Active Substance: TRAZODONE HYDROCHLORIDE
     Indication: PRODUCT USED FOR UNKNOWN INDICATION
     Route: 065
  7. LOPERAMIDE [Suspect]
     Active Substance: LOPERAMIDE
     Indication: PRODUCT USED FOR UNKNOWN INDICATION
     Route: 065
  8. BISOPROLOL [Suspect]
     Active Substance: BISOPROLOL
     Indication: PRODUCT USED FOR UNKNOWN INDICATION
     Route: 065
  9. ROHYPNOL [Suspect]
     Active Substance: FLUNITRAZEPAM
     Indication: PRODUCT USED FOR UNKNOWN INDICATION
     Route: 048
  10. BUTALBITAL [Suspect]
     Active Substance: BUTALBITAL
     Indication: PRODUCT USED FOR UNKNOWN INDICATION
     Route: 065
  11. PROPYPHENAZONE [Suspect]
     Active Substance: PROPYPHENAZONE
     Indication: PRODUCT USED FOR UNKNOWN INDICATION
     Route: 065
  12. TRAMADOL. [Suspect]
     Active Substance: TRAMADOL
     Indication: PRODUCT USED FOR UNKNOWN INDICATION
     Route: 065
  13. VALIUM [Suspect]
     Active Substance: DIAZEPAM
     Indication: PRODUCT USED FOR UNKNOWN INDICATION
     Route: 048
  14. METAMIZOLE [Concomitant]
     Active Substance: METAMIZOLE
     Indication: PRODUCT USED FOR UNKNOWN INDICATION
     Route: 065
  15. NORDAZEPAM [Concomitant]
     Active Substance: NORDAZEPAM
     Indication: PRODUCT USED FOR UNKNOWN INDICATION
     Route: 065
  16. PHENOBARBITAL. [Suspect]
     Active Substance: PHENOBARBITAL
     Indication: PRODUCT USED FOR UNKNOWN INDICATION
     Route: 033

REACTIONS (9)
  - Peritoneal perforation [Fatal]
  - Injection site necrosis [Unknown]
  - Toxicity to various agents [Fatal]
  - Pharyngitis [Unknown]
  - Intentional overdose [Fatal]
  - Completed suicide [Fatal]
  - Brain injury [Fatal]
  - Aspiration [Fatal]
  - Tracheitis [Unknown]
